FAERS Safety Report 18243026 (Version 1)
Quarter: 2020Q3

REPORT INFORMATION
  Report Type: Spontaneous
  Country: US (occurrence: US)
  Receive Date: 20200908
  Receipt Date: 20200908
  Transmission Date: 20201103
  Serious: No
  Sender: FDA-Public Use
  Company Number: None

PATIENT
  Age: 60 Year
  Sex: Female
  Weight: 102.15 kg

DRUGS (7)
  1. AMLODIPINE [Suspect]
     Active Substance: AMLODIPINE BESYLATE
     Indication: HYPERTENSION
     Dosage: ?          QUANTITY:1 TABLET(S);?
     Route: 048
  2. EZETIMIBE. [Concomitant]
     Active Substance: EZETIMIBE
  3. ASPIRIN 81 [Concomitant]
     Active Substance: ASPIRIN
  4. GINGER. [Concomitant]
     Active Substance: GINGER
  5. VALSARTAN. [Suspect]
     Active Substance: VALSARTAN
     Indication: HYPERTENSION
     Dosage: ?          QUANTITY:1 TABLET(S);?
     Route: 048
  6. VITAMIN D [Concomitant]
     Active Substance: VITAMIN D NOS
  7. CALCIUM [Concomitant]
     Active Substance: CALCIUM

REACTIONS (5)
  - Paraesthesia [None]
  - Swelling [None]
  - Breast pain [None]
  - Neoplasm [None]
  - Hypoaesthesia [None]

NARRATIVE: CASE EVENT DATE: 20200701
